FAERS Safety Report 7506716-2 (Version None)
Quarter: 2011Q2

REPORT INFORMATION
  Report Type: 
  Country: None (occurrence: None)
  Receive Date: 20110526
  Receipt Date: 20110512
  Transmission Date: 20111010
  Serious: Yes (Other)
  Sender: FDA-Public Use
  Company Number: PHHY2010BR80963

PATIENT
  Sex: Female

DRUGS (3)
  1. DIOVAN HCT [Suspect]
     Indication: HYPERTENSION
     Dosage: 1 DF, 160 MG VALS AND 12.5 MG HYDRO
     Route: 048
  2. ATENOLOL [Suspect]
     Indication: HYPERTENSION
     Dosage: 1 DF, 25 MG
     Route: 048
  3. METFORMIN HCL [Suspect]
     Indication: CARDIAC DISORDER
     Dosage: 1 DF, 60 MG
     Route: 048

REACTIONS (5)
  - BLOOD PRESSURE INCREASED [None]
  - NERVOUSNESS [None]
  - INCORRECT DOSE ADMINISTERED [None]
  - MYOCARDIAL INFARCTION [None]
  - EMOTIONAL DISORDER [None]
